FAERS Safety Report 6068030-4 (Version None)
Quarter: 2009Q1

REPORT INFORMATION
  Report Type: 
  Country: None (occurrence: None)
  Receive Date: 20090206
  Receipt Date: 20090130
  Transmission Date: 20090719
  Serious: Yes (Hospitalization)
  Sender: FDA-Public Use
  Company Number: US-BRISTOL-MYERS SQUIBB COMPANY-14489868

PATIENT
  Age: 63 Year
  Sex: Male
  Weight: 75 kg

DRUGS (3)
  1. ERBITUX [Suspect]
     Indication: HEAD AND NECK CANCER
     Dosage: 1STDOSE:08DEC2008.400MG/M2 IV LOADING DOSE FOLLD BY WKS 1-7,250MG/M2IV.DOSE DELYD DUE TO MUCOSITIS.
     Route: 042
     Dates: start: 20081229, end: 20081229
  2. CISPLATIN [Suspect]
     Indication: HEAD AND NECK CANCER
     Dosage: 1ST DOSE:08DEC2008.100MG/M2 IV DL+D22.DOSE DELAYED DUE TO PLTS BELOW 75,000
     Route: 042
     Dates: start: 20081215, end: 20081215
  3. RADIATION THERAPY [Suspect]
     Indication: HEAD AND NECK CANCER
     Dosage: INITIAL DOSE:08DEC2008.1 DF-4959.1 CGY.IMRT 35 FRACTIONS OVER 6 WKS.LAST RX:13JAN09,FRACTIONS 24.
     Dates: start: 20081208, end: 20081208

REACTIONS (4)
  - LYMPHOPENIA [None]
  - MUCOSAL INFLAMMATION [None]
  - ORAL PAIN [None]
  - WHITE BLOOD CELL DISORDER [None]
